FAERS Safety Report 6207726-8 (Version None)
Quarter: 2009Q2

REPORT INFORMATION
  Report Type: 
  Country: None (occurrence: None)
  Receive Date: 20090522
  Receipt Date: 20090512
  Transmission Date: 20091009
  Serious: Yes (Life-Threatening, Hospitalization)
  Sender: FDA-Public Use
  Company Number: 8044275

PATIENT
  Age: 25 Year
  Sex: Female

DRUGS (11)
  1. KEPPRA [Suspect]
     Indication: EPILEPSY
     Dosage: 250 MG 2/D PO
     Route: 048
     Dates: start: 20081113, end: 20081119
  2. KEPPRA [Suspect]
     Indication: EPILEPSY
     Dosage: 750 MG 1/D PO
     Route: 048
     Dates: start: 20081120, end: 20081126
  3. KEPPRA [Suspect]
     Indication: EPILEPSY
     Dosage: 500 MG 2/D PO
     Route: 048
     Dates: start: 20090105, end: 20090121
  4. KEPPRA [Suspect]
     Indication: EPILEPSY
     Dosage: 1250 MG /D PO
     Route: 048
     Dates: start: 20081208, end: 20081214
  5. KEPPRA [Suspect]
     Indication: EPILEPSY
     Dosage: 1000 MG 2/D PO
     Route: 048
     Dates: start: 20090105, end: 20090121
  6. KEPPRA [Suspect]
     Indication: EPILEPSY
     Dosage: 2250 MG 1/D PO
     Route: 048
     Dates: start: 20090122, end: 20090131
  7. KEPPRA [Suspect]
     Indication: EPILEPSY
     Dosage: 1250 MG 2/D PO
     Route: 048
     Dates: start: 20090201, end: 20090401
  8. LAMICTAL [Concomitant]
  9. LAMICTAL [Concomitant]
  10. ORFIRIL [Concomitant]
  11. FRISIUM [Concomitant]

REACTIONS (8)
  - CEREBRAL HAEMORRHAGE [None]
  - CONDITION AGGRAVATED [None]
  - CONVULSION [None]
  - FALL [None]
  - HAEMORRHAGE [None]
  - MUSCLE SPASTICITY [None]
  - SUBARACHNOID HAEMORRHAGE [None]
  - SUBDURAL HAEMATOMA [None]
